FAERS Safety Report 16112008 (Version 2)
Quarter: 2019Q2

REPORT INFORMATION
  Report Type: Report from Study
  Country: FR (occurrence: FR)
  Receive Date: 20190325
  Receipt Date: 20190412
  Transmission Date: 20190711
  Serious: Yes (Other)
  Sender: FDA-Public Use
  Company Number: FR-ROCHE-2286801

PATIENT

DRUGS (2)
  1. TOCILIZUMAB. [Suspect]
     Active Substance: TOCILIZUMAB
     Indication: RHEUMATOID ARTHRITIS
     Route: 058
  2. TOCILIZUMAB. [Suspect]
     Active Substance: TOCILIZUMAB
     Indication: RHEUMATOID ARTHRITIS
     Route: 042

REACTIONS (12)
  - Urinary tract infection [Unknown]
  - Pneumonia [Unknown]
  - Hepatocellular injury [Unknown]
  - Hypertension [Unknown]
  - Drug ineffective [Unknown]
  - Skin infection [Unknown]
  - Biliary tract infection [Unknown]
  - Colorectal cancer [Unknown]
  - Hypersensitivity [Unknown]
  - Cytopenia [Unknown]
  - Injection site reaction [Unknown]
  - Treatment failure [Unknown]
